FAERS Safety Report 6632392-7 (Version None)
Quarter: 2010Q1

REPORT INFORMATION
  Report Type: 
  Country: None (occurrence: None)
  Receive Date: 20100312
  Receipt Date: 20100308
  Transmission Date: 20100710
  Serious: Yes (Hospitalization)
  Sender: FDA-Public Use
  Company Number: SE-MERCK-1003SWE00006

PATIENT
  Age: 84 Year
  Sex: Female

DRUGS (11)
  1. FOSAMAX [Suspect]
     Indication: OSTEOPOROSIS
     Route: 048
     Dates: start: 20050101, end: 20100111
  2. OMEPRAZOLE [Concomitant]
     Route: 065
  3. POLYETHYLENE GLYCOL 3350 AND POTASSIUM CHLORIDE AND SODIUM BICARBONATE [Concomitant]
     Route: 065
  4. ACETAMINOPHEN [Concomitant]
     Route: 065
  5. DIAZEPAM [Concomitant]
     Route: 065
  6. PSYLLIUM HUSK [Concomitant]
     Route: 065
  7. PREDNISOLONE [Concomitant]
     Route: 065
  8. FUROSEMIDE [Concomitant]
     Route: 065
  9. DIMETHICONE [Concomitant]
     Route: 065
  10. CALCIUM CARBONATE [Concomitant]
     Route: 065
  11. TRAMADOL HYDROCHLORIDE [Concomitant]
     Route: 065

REACTIONS (1)
  - PATHOLOGICAL FRACTURE [None]
